FAERS Safety Report 9528228 (Version 1)
Quarter: 2013Q3

REPORT INFORMATION
  Report Type: Report from Study
  Country: TH (occurrence: TH)
  Receive Date: 20130917
  Receipt Date: 20130917
  Transmission Date: 20140515
  Serious: Yes (Hospitalization)
  Sender: FDA-Public Use
  Company Number: PHHY2013TH102507

PATIENT
  Age: 71 Year
  Sex: Female

DRUGS (2)
  1. ZOMETA [Suspect]
     Dosage: 4 MG, PER TIME PER MONTH
     Route: 041
  2. ZOMETA [Suspect]
     Dosage: 4 MG, PER TIME PER MONTH
     Route: 041
     Dates: start: 20130806

REACTIONS (1)
  - Abdominal abscess [Not Recovered/Not Resolved]
